FAERS Safety Report 4373604-2 (Version None)
Quarter: 2004Q1

REPORT INFORMATION
  Report Type: 
  Country: None (occurrence: None)
  Receive Date: 20040305
  Receipt Date: 20040204
  Transmission Date: 20041129
  Serious: Yes (Other)
  Sender: FDA-Public Use
  Company Number: 2004UW01925

PATIENT
  Age: 70 Year
  Sex: Female

DRUGS (5)
  1. CRESTOR [Suspect]
     Indication: BLOOD CHOLESTEROL INCREASED
     Dosage: 10 MG DAILY PO
     Route: 048
     Dates: start: 20031201
  2. LISINOPRIL + HYDROCGHLOROTHIAZIDE [Concomitant]
  3. TAZTIA [Concomitant]
  4. PREMARIN [Concomitant]
  5. SYNTHROID [Concomitant]

REACTIONS (3)
  - ABNORMAL DREAMS [None]
  - HYPOTONIA [None]
  - INSOMNIA [None]
